FAERS Safety Report 11403027 (Version 1)
Quarter: 2015Q3

REPORT INFORMATION
  Report Type: Spontaneous
  Country: US (occurrence: None)
  Receive Date: 20150820
  Receipt Date: 20150820
  Transmission Date: 20151125
  Serious: Yes (Disabling, Other)
  Sender: FDA-Public Use
  Company Number: None

PATIENT
  Age: 76 Year
  Sex: Female
  Weight: 99.79 kg

DRUGS (12)
  1. FISH OIL [Concomitant]
     Active Substance: FISH OIL
  2. RANITIDINE [Concomitant]
     Active Substance: RANITIDINE\RANITIDINE HYDROCHLORIDE
  3. D3 [Concomitant]
     Active Substance: 25-HYDROXYCHOLECALCIFEROL, 5-TRANS-
  4. GABAPENTIN. [Concomitant]
     Active Substance: GABAPENTIN
  5. CINNAMON. [Concomitant]
     Active Substance: CINNAMON
  6. E-400 [Concomitant]
  7. VICTOZA [Suspect]
     Active Substance: LIRAGLUTIDE
     Indication: BLOOD GLUCOSE INCREASED
     Dosage: SQ. 1.8 MG ONCE DAILY
     Dates: start: 20150120, end: 20150224
  8. GLIPIZIDE. [Concomitant]
     Active Substance: GLIPIZIDE
  9. STOOL SOFTENER [Concomitant]
     Active Substance: DOCUSATE CALCIUM
  10. PRAVASTATIN [Concomitant]
     Active Substance: PRAVASTATIN\PRAVASTATIN SODIUM
  11. ASPIRIN. [Concomitant]
     Active Substance: ASPIRIN
  12. ACIDOPHILUS [Concomitant]
     Active Substance: LACTOBACILLUS ACIDOPHILUS

REACTIONS (1)
  - Constipation [None]

NARRATIVE: CASE EVENT DATE: 20150224
